FAERS Safety Report 7272634-0 (Version None)
Quarter: 2011Q1

REPORT INFORMATION
  Report Type: 
  Country: None (occurrence: None)
  Receive Date: 20110203
  Receipt Date: 20110126
  Transmission Date: 20110831
  Serious: Yes (Disabling)
  Sender: FDA-Public Use
  Company Number: JP-ASTRAZENECA-2011SE04914

PATIENT
  Sex: Female

DRUGS (2)
  1. LASIX [Concomitant]
     Dosage: DOSE UNKNOWN
     Route: 065
  2. CRESTOR [Suspect]
     Indication: HYPERCHOLESTEROLAEMIA
     Dosage: DOSE UNKNOWN
     Route: 048
     Dates: start: 20101101, end: 20110117

REACTIONS (1)
  - SKIN MASS [None]
